FAERS Safety Report 7108309-8 (Version None)
Quarter: 2010Q4

REPORT INFORMATION
  Report Type: 
  Country: None (occurrence: None)
  Receive Date: 20101117
  Receipt Date: 20101115
  Transmission Date: 20110411
  Serious: Yes (Other)
  Sender: FDA-Public Use
  Company Number: A0892468A

PATIENT
  Age: 67 Year
  Sex: Male

DRUGS (6)
  1. NICODERM CQ [Suspect]
     Indication: SMOKING CESSATION THERAPY
     Route: 062
     Dates: start: 20101014
  2. NICODERM CQ [Suspect]
     Indication: SMOKING CESSATION THERAPY
     Route: 062
     Dates: start: 20101014
  3. TRAMADOL HCL [Concomitant]
  4. ATIVAN [Concomitant]
  5. ASPIRIN [Concomitant]
  6. ANTI-CHOLESTEROL MEDICATION [Concomitant]

REACTIONS (2)
  - HYPERHIDROSIS [None]
  - PNEUMONIA [None]
